FAERS Safety Report 11870079 (Version 1)
Quarter: 2015Q4

REPORT INFORMATION
  Report Type: Spontaneous
  Country: US (occurrence: US)
  Receive Date: 20151228
  Receipt Date: 20151228
  Transmission Date: 20160305
  Serious: No
  Sender: FDA-Public Use
  Company Number: US-BAYER-2015-492267

PATIENT
  Age: 90 Year
  Sex: Female
  Weight: 71.2 kg

DRUGS (3)
  1. CRESTOR [Concomitant]
     Active Substance: ROSUVASTATIN CALCIUM
     Dosage: UNK
  2. AMLODIPINE [Concomitant]
     Active Substance: AMLODIPINE BESYLATE
     Dosage: UNK
  3. OXYTROL FOR WOMEN [Suspect]
     Active Substance: OXYBUTYNIN
     Indication: URINARY INCONTINENCE
     Dosage: UNK UNK, PRN
     Route: 061
     Dates: start: 2007

REACTIONS (3)
  - Hypertension [None]
  - Product use issue [Unknown]
  - Blood cholesterol increased [None]

NARRATIVE: CASE EVENT DATE: 2010
